FAERS Safety Report 23936016 (Version 11)
Quarter: 2025Q4

REPORT INFORMATION
  Report Type: Report from Study
  Country: CA (occurrence: CA)
  Receive Date: 20240604
  Receipt Date: 20251217
  Transmission Date: 20260117
  Serious: Yes (Other)
  Sender: JOHNSON AND JOHNSON
  Company Number: CA-JNJFOC-20240580501

PATIENT
  Age: 33 Year
  Sex: Female
  Weight: 117.93 kg

DRUGS (9)
  1. STELARA [Suspect]
     Active Substance: USTEKINUMAB
     Indication: Crohn^s disease
     Route: 058
     Dates: start: 20230524
  2. STELARA [Suspect]
     Active Substance: USTEKINUMAB
     Indication: Chronic spontaneous urticaria
     Route: 058
     Dates: start: 20230309
  3. STELARA [Suspect]
     Active Substance: USTEKINUMAB
     Route: 058
     Dates: start: 20240828
  4. STELARA [Suspect]
     Active Substance: USTEKINUMAB
     Route: 058
  5. STELARA [Suspect]
     Active Substance: USTEKINUMAB
     Route: 058
  6. STELARA [Suspect]
     Active Substance: USTEKINUMAB
     Route: 058
     Dates: start: 20230524
  7. PNEUMOCOCCAL VACCINE NOS [Suspect]
     Active Substance: PNEUMOCOCCAL VACCINE
  8. PENTASA [Concomitant]
     Active Substance: MESALAMINE
     Indication: Product used for unknown indication
  9. BUDESONIDE [Concomitant]
     Active Substance: BUDESONIDE
     Indication: Product used for unknown indication

REACTIONS (13)
  - Septic shock [Unknown]
  - Pneumonia [Not Recovered/Not Resolved]
  - Lower respiratory tract infection [Recovered/Resolved]
  - Polycystic ovarian syndrome [Recovered/Resolved]
  - Product dose omission issue [Unknown]
  - Tooth extraction [Unknown]
  - Ear infection [Recovered/Resolved]
  - Peripheral swelling [Unknown]
  - Erythema [Unknown]
  - Menstrual disorder [Unknown]
  - Treatment noncompliance [Unknown]
  - Nasopharyngitis [Recovered/Resolved]
  - Viral infection [Unknown]

NARRATIVE: CASE EVENT DATE: 20240518
